FAERS Safety Report 14247654 (Version 1)
Quarter: 2017Q4

REPORT INFORMATION
  Report Type: Spontaneous
  Country: US (occurrence: None)
  Receive Date: 20171203
  Receipt Date: 20171203
  Transmission Date: 20180321
  Serious: Yes (Other)
  Sender: FDA-Public Use
  Company Number: None

PATIENT
  Age: 48 Year
  Sex: Female
  Weight: 120.66 kg

DRUGS (1)
  1. OTEZLA [Suspect]
     Active Substance: APREMILAST
     Indication: PSORIATIC ARTHROPATHY
     Dosage: 1TAB ?2X DAY
     Route: 048
     Dates: start: 20171104, end: 20171127

REACTIONS (6)
  - Anxiety [None]
  - Therapy cessation [None]
  - Decreased activity [None]
  - Insomnia [None]
  - Crying [None]
  - Depression [None]

NARRATIVE: CASE EVENT DATE: 201711
